FAERS Safety Report 8480824 (Version 3)
Quarter: 2012Q4

REPORT INFORMATION
  Report Type: 
  Country: US (occurrence: US)
  Receive Date: 20120328
  Receipt Date: 20120912
  Transmission Date: 20130627
  Serious: Yes (Hospitalization)
  Sender: FDA-Public Use
  Company Number: US-ALEXION-A201200538

PATIENT
  Age: 63 None
  Sex: Male
  Weight: 87.7 kg

DRUGS (9)
  1. SOLIRIS 300MG [Suspect]
     Indication: PAROXYSMAL NOCTURNAL HAEMOGLOBINURIA
     Dosage: 600 mg, qw
     Route: 042
     Dates: start: 20120131, end: 201202
  2. SOLIRIS 300MG [Suspect]
     Dosage: 900 mg, q2w
     Route: 042
     Dates: start: 20120228
  3. NORMAL SALINE [Concomitant]
     Dosage: UNK
     Route: 042
  4. POTASSIUM [Concomitant]
     Indication: HYPOKALAEMIA
  5. XANAX [Concomitant]
     Indication: PANIC ATTACK
  6. LASIX [Concomitant]
  7. PREDNISONE [Concomitant]
     Dosage: 15 mg, qd
  8. WARFARIN [Concomitant]
  9. VIAGRA [Suspect]
     Indication: ERECTILE DYSFUNCTION

REACTIONS (3)
  - Pulmonary oedema [Recovered/Resolved]
  - Pleural effusion [Recovered/Resolved]
  - Cardiac failure congestive [Recovered/Resolved]
